FAERS Safety Report 4535917-0 (Version None)
Quarter: 2004Q4

REPORT INFORMATION
  Report Type: 
  Country: None (occurrence: None)
  Receive Date: 20041223
  Receipt Date: 20041215
  Transmission Date: 20050328
  Serious: Yes (Hospitalization)
  Sender: FDA-Public Use
  Company Number: US-JNJFOC-20040901566

PATIENT
  Sex: Female
  Weight: 81.65 kg

DRUGS (11)
  1. INFLIXIMAB [Suspect]
     Indication: RHEUMATOID ARTHRITIS
     Route: 042
  2. METHOTREXATE SODIUM [Concomitant]
  3. VIOXX [Concomitant]
  4. PREDNISONE [Concomitant]
  5. FOLIC ACID [Concomitant]
  6. PREMARIN [Concomitant]
  7. DIOVAN HCT [Concomitant]
  8. DIOVAN HCT [Concomitant]
     Dosage: 160/12.5 MG TWICE DAILY
  9. TAZTIA XT [Concomitant]
  10. ASPIRIN [Concomitant]
  11. CALTRATE [Concomitant]

REACTIONS (4)
  - ACQUIRED OESOPHAGEAL WEB [None]
  - CHEST PAIN [None]
  - GASTRITIS [None]
  - OESOPHAGITIS [None]
